FAERS Safety Report 9767586 (Version 2)
Quarter: 2013Q4

REPORT INFORMATION
  Report Type: Spontaneous
  Country: US (occurrence: US)
  Receive Date: 20131217
  Receipt Date: 20131217
  Transmission Date: 20140711
  Serious: No
  Sender: FDA-Public Use
  Company Number: US-GILEAD-2010-0027791

PATIENT
  Age: 44 Year
  Sex: Male
  Weight: 71.67 kg

DRUGS (7)
  1. VIREAD [Suspect]
     Indication: HIV INFECTION
     Route: 048
     Dates: start: 2001, end: 200912
  2. TRUVADA [Suspect]
     Dates: start: 200912
  3. DDI [Concomitant]
     Indication: HIV INFECTION
     Dates: start: 2001, end: 200912
  4. NORVIR [Concomitant]
     Indication: HIV INFECTION
     Dates: start: 2001, end: 200912
  5. INVIRASE [Concomitant]
     Indication: HIV INFECTION
     Dates: start: 2001
  6. CELEXA [Concomitant]
  7. LIPITOR [Concomitant]

REACTIONS (2)
  - Polycythaemia [Not Recovered/Not Resolved]
  - Headache [Unknown]
